FAERS Safety Report 22341108 (Version 1)
Quarter: 2023Q2

REPORT INFORMATION
  Report Type: Spontaneous
  Country: US (occurrence: US)
  Receive Date: 20230518
  Receipt Date: 20230518
  Transmission Date: 20230721
  Serious: Yes (Other)
  Sender: FDA-Public Use
  Company Number: US-BAYER-2023A066975

PATIENT

DRUGS (1)
  1. ALEVE [Suspect]
     Active Substance: NAPROXEN SODIUM
     Dosage: 1 DF, BID

REACTIONS (3)
  - Peptic ulcer haemorrhage [Unknown]
  - Incorrect product administration duration [Unknown]
  - Haemoglobin decreased [Unknown]
